FAERS Safety Report 17165178 (Version 1)
Quarter: 2019Q4

REPORT INFORMATION
  Report Type: Spontaneous
  Country: FR (occurrence: FR)
  Receive Date: 20191217
  Receipt Date: 20191217
  Transmission Date: 20200122
  Serious: Yes (Hospitalization)
  Sender: FDA-Public Use
  Company Number: FR-MYLANLABS-2019M1123385

PATIENT
  Age: 20 Year
  Sex: Female

DRUGS (4)
  1. CLAFORAN [Suspect]
     Active Substance: CEFOTAXIME SODIUM
     Indication: STAPHYLOCOCCAL SEPSIS
     Dosage: UNK
     Route: 065
     Dates: start: 20120621, end: 20120626
  2. CILASTATIN/IMIPENEM [Suspect]
     Active Substance: CILASTATIN SODIUM\IMIPENEM
     Indication: STAPHYLOCOCCAL SEPSIS
     Dosage: UNK
     Route: 065
     Dates: start: 20120626
  3. VANCOMYCIN [Suspect]
     Active Substance: VANCOMYCIN
     Indication: STAPHYLOCOCCAL SEPSIS
     Dosage: UNK
     Route: 065
     Dates: start: 20120621
  4. GENTAMICIN. [Suspect]
     Active Substance: GENTAMICIN
     Indication: STAPHYLOCOCCAL SEPSIS
     Dosage: 3 DOSAGE FORM
     Route: 051
     Dates: start: 20120621

REACTIONS (1)
  - Hepatic function abnormal [Recovered/Resolved]

NARRATIVE: CASE EVENT DATE: 20120627
